FAERS Safety Report 23060216 (Version 1)
Quarter: 2023Q4

REPORT INFORMATION
  Report Type: Spontaneous
  Country: US (occurrence: None)
  Receive Date: 20231011
  Receipt Date: 20231011
  Transmission Date: 20240110
  Serious: Yes (Death)
  Sender: FDA-Public Use
  Company Number: None

PATIENT
  Sex: Male

DRUGS (17)
  1. PROLIA [Suspect]
     Active Substance: DENOSUMAB
     Indication: Osteoporosis
     Dosage: FREQUENCY : ONCE;?
     Route: 058
     Dates: start: 20210709
  2. AMLODIPINE [Concomitant]
     Active Substance: AMLODIPINE BESYLATE
  3. CALTRATE + D3 [Concomitant]
  4. CENTRUM SILV TAB 50+ WOMEN [Concomitant]
  5. VITAMIN D3 [Concomitant]
     Active Substance: CHOLECALCIFEROL
  6. EPLERENONE [Concomitant]
     Active Substance: EPLERENONE
  7. FUROSEMIDE [Concomitant]
     Active Substance: FUROSEMIDE
  8. LACTULOSE [Concomitant]
     Active Substance: LACTULOSE
  9. LAMIVUDINE [Concomitant]
     Active Substance: LAMIVUDINE
  10. LEVOTHYROXINE [Concomitant]
     Active Substance: LEVOTHYROXINE
  11. MAGENSIUM [Concomitant]
  12. METAMUCIL POW 28.3% ORG [Concomitant]
  13. METOPROL TAR [Concomitant]
  14. PANTOPRAZOLE [Concomitant]
     Active Substance: PANTOPRAZOLE
  15. RIBAVIRIN [Concomitant]
     Active Substance: RIBAVIRIN
  16. TACROLIMUS [Concomitant]
     Active Substance: TACROLIMUS
  17. XIFAXAN [Concomitant]
     Active Substance: RIFAXIMIN

REACTIONS (1)
  - Death [None]
